FAERS Safety Report 4364950-7 (Version None)
Quarter: 2004Q2

REPORT INFORMATION
  Report Type: 
  Country: None (occurrence: None)
  Receive Date: 20040521
  Receipt Date: 20040513
  Transmission Date: 20050107
  Serious: Yes (Other)
  Sender: FDA-Public Use
  Company Number: 2004-05-0826

PATIENT
  Age: 80 Year
  Sex: Female

DRUGS (1)
  1. CELESTONE [Suspect]
     Indication: BRONCHITIS
     Dosage: ORAL
     Route: 048

REACTIONS (2)
  - ANGIONEUROTIC OEDEMA [None]
  - GENERALISED OEDEMA [None]
